FAERS Safety Report 19388774 (Version 3)
Quarter: 2021Q2

REPORT INFORMATION
  Report Type: Report from Study
  Country: KR (occurrence: KR)
  Receive Date: 20210608
  Receipt Date: 20210624
  Transmission Date: 20210717
  Serious: Yes (Hospitalization)
  Sender: FDA-Public Use
  Company Number: KR-EISAI MEDICAL RESEARCH-EC-2021-094052

PATIENT
  Age: 56 Year
  Sex: Male
  Weight: 81 kg

DRUGS (8)
  1. LOPERAMIDE [Concomitant]
     Active Substance: LOPERAMIDE
     Dates: start: 20210324
  2. MAGNESIUM OXIDE. [Concomitant]
     Active Substance: MAGNESIUM OXIDE
     Dates: start: 20210324
  3. TANTUM [Concomitant]
     Active Substance: BENZYDAMINE HYDROCHLORIDE
     Dosage: RINSE
     Dates: start: 20210324
  4. LENVATINIB [Suspect]
     Active Substance: LENVATINIB
     Indication: GLIOBLASTOMA
     Route: 048
     Dates: start: 20210324
  5. PEMBROLIZUMAB. [Suspect]
     Active Substance: PEMBROLIZUMAB
     Route: 041
     Dates: start: 20210525, end: 20210525
  6. KEPPRA [Concomitant]
     Active Substance: LEVETIRACETAM
     Dates: start: 20180928
  7. PEMBROLIZUMAB. [Suspect]
     Active Substance: PEMBROLIZUMAB
     Indication: GLIOBLASTOMA
     Route: 041
     Dates: start: 20210324, end: 20210504
  8. MACPERAN [Concomitant]
     Active Substance: METOCLOPRAMIDE HYDROCHLORIDE
     Dates: start: 20210324

REACTIONS (1)
  - Diarrhoea [Recovering/Resolving]

NARRATIVE: CASE EVENT DATE: 20210529
